FAERS Safety Report 18630369 (Version 2)
Quarter: 2020Q4

REPORT INFORMATION
  Report Type: Spontaneous
  Country: US (occurrence: US)
  Receive Date: 20201218
  Receipt Date: 20201222
  Transmission Date: 20210114
  Serious: No
  Sender: FDA-Public Use
  Company Number: US-ENDO PHARMACEUTICALS INC-2019-110088

PATIENT
  Age: 62 Year
  Sex: Male
  Weight: 99.77 kg

DRUGS (8)
  1. XIAFLEX [Suspect]
     Active Substance: COLLAGENASE CLOSTRIDIUM HISTOLYTICUM
     Dosage: UNK UNKNOWN, UNKNOWN; CYCLE TWO, INJECTION TWO
     Route: 026
     Dates: start: 201909
  2. XIAFLEX [Suspect]
     Active Substance: COLLAGENASE CLOSTRIDIUM HISTOLYTICUM
     Dosage: UNK UNKNOWN, UNKNOWN; CYCLE THREE, INJECTION TWO
     Route: 026
     Dates: start: 20191107
  3. XIAFLEX [Suspect]
     Active Substance: COLLAGENASE CLOSTRIDIUM HISTOLYTICUM
     Dosage: UNK UNKNOWN, UNKNOWN; CYCLE TWO, INJECTION ONE
     Route: 026
     Dates: start: 201909
  4. XIAFLEX [Suspect]
     Active Substance: COLLAGENASE CLOSTRIDIUM HISTOLYTICUM
     Dosage: UNK UNKNOWN, UNKNOWN; CYCLE THREE, INJECTION ONE
     Route: 026
     Dates: start: 20191105
  5. PLAVIX [Concomitant]
     Active Substance: CLOPIDOGREL BISULFATE
     Indication: STENT PLACEMENT
  6. XIAFLEX [Suspect]
     Active Substance: COLLAGENASE CLOSTRIDIUM HISTOLYTICUM
     Indication: PEYRONIE^S DISEASE
     Dosage: UNK UNKNOWN, UNKNOWN; CYCLE ONE, INJECTION ONE
     Route: 026
     Dates: start: 201908
  7. XIAFLEX [Suspect]
     Active Substance: COLLAGENASE CLOSTRIDIUM HISTOLYTICUM
     Dosage: UNK UNKNOWN, UNKNOWN; CYCLE ONE, INJECTION TWO
     Route: 026
     Dates: start: 201908
  8. ASPIRIN                            /00002701/ [Concomitant]
     Active Substance: ASPIRIN
     Indication: STENT PLACEMENT

REACTIONS (5)
  - Genital pain [Recovering/Resolving]
  - Injection site pain [Recovering/Resolving]
  - Genital contusion [Recovering/Resolving]
  - Injection site bruising [Recovering/Resolving]
  - Injection site swelling [Recovering/Resolving]

NARRATIVE: CASE EVENT DATE: 201908
